FAERS Safety Report 4805456-8 (Version None)
Quarter: 2005Q4

REPORT INFORMATION
  Report Type: 
  Country: None (occurrence: None)
  Receive Date: 20051018
  Receipt Date: 20051011
  Transmission Date: 20060501
  Serious: Yes (Other)
  Sender: FDA-Public Use
  Company Number: 2005126445

PATIENT
  Age: 44 Year
  Sex: Female

DRUGS (3)
  1. NORVASC [Suspect]
     Indication: HYPERTENSION
     Dosage: 20 MG (10 MG, BID INTERVAL:  EVERY DAY), ORAL
     Route: 048
     Dates: start: 20020719, end: 20050401
  2. METOPROLOL SUCCINATE [Concomitant]
  3. COAPROVEL (HYDROCHLOROTHIAZIDE, IRBESARTAN) [Concomitant]

REACTIONS (1)
  - GINGIVITIS [None]
